FAERS Safety Report 14530978 (Version 1)
Quarter: 2018Q1

REPORT INFORMATION
  Report Type: Spontaneous
  Country: US (occurrence: US)
  Receive Date: 20180213
  Receipt Date: 20180213
  Transmission Date: 20180509
  Serious: No
  Sender: FDA-Public Use
  Company Number: None

PATIENT
  Age: 61 Year
  Sex: Female
  Weight: 53.1 kg

DRUGS (6)
  1. RED YEAST RICE [Concomitant]
     Active Substance: DIETARY SUPPLEMENT
  2. ASPIRIN. [Concomitant]
     Active Substance: ASPIRIN
  3. HUMIRA [Suspect]
     Active Substance: ADALIMUMAB
     Indication: PSORIASIS
     Dosage: ?          OTHER FREQUENCY:TWICE;?
     Route: 030
     Dates: start: 20180125, end: 20180202
  4. CALCIUM [Concomitant]
     Active Substance: CALCIUM
  5. OXYBUTYNIN. [Concomitant]
     Active Substance: OXYBUTYNIN CHLORIDE
  6. MULTIVITAMIN [Concomitant]
     Active Substance: VITAMINS

REACTIONS (7)
  - Chills [None]
  - Eye swelling [None]
  - Fatigue [None]
  - Swollen tongue [None]
  - Rash [None]
  - Lip swelling [None]
  - Feeling jittery [None]

NARRATIVE: CASE EVENT DATE: 20180202
